FAERS Safety Report 15862038 (Version 1)
Quarter: 2018Q4

REPORT INFORMATION
  Report Type: Spontaneous
  Country: US (occurrence: US)
  Receive Date: 20181231
  Receipt Date: 20181231
  Transmission Date: 20190205
  Serious: Yes (Life-Threatening, Hospitalization)
  Sender: FDA-Public Use
  Company Number: None

PATIENT
  Age: 65 Year
  Sex: Female
  Weight: 48.3 kg

DRUGS (1)
  1. MIRCERA [Suspect]
     Active Substance: METHOXY POLYETHYLENE GLYCOL-EPOETIN BETA
     Indication: ANAEMIA
     Dosage: ?          OTHER DOSE:50 MCG;OTHER FREQUENCY:EVERY 2 WEEKS;?
     Route: 040
     Dates: start: 20180630, end: 20180630

REACTIONS (5)
  - Drug hypersensitivity [None]
  - Pruritus [None]
  - Blood pressure decreased [None]
  - Nausea [None]
  - Dyspnoea [None]

NARRATIVE: CASE EVENT DATE: 20180630
